FAERS Safety Report 24895416 (Version 4)
Quarter: 2025Q2

REPORT INFORMATION
  Report Type: Report from Study
  Country: JP (occurrence: JP)
  Receive Date: 20250128
  Receipt Date: 20250429
  Transmission Date: 20250717
  Serious: Yes (Death)
  Sender: ALNYLAM PHARMACEUTICALS
  Company Number: JP-ALNYLAM PHARMACEUTICALS, INC.-ALN-2025-000578

PATIENT

DRUGS (9)
  1. AMVUTTRA [Suspect]
     Active Substance: VUTRISIRAN
     Indication: Hereditary neuropathic amyloidosis
     Route: 058
     Dates: start: 20240130, end: 20241016
  2. TADALAFIL [Concomitant]
     Active Substance: TADALAFIL
     Indication: Benign prostatic hyperplasia
     Dosage: 1 TABLET, QD,IMMEDIATELY AFTER BREAKFAST
     Route: 048
     Dates: start: 20241204
  3. PREGABALIN [Concomitant]
     Active Substance: PREGABALIN
     Indication: Product used for unknown indication
     Dosage: 2 TABLETS, TID,IMMEDIATELY AFTER EVERY MEAL
     Route: 048
     Dates: start: 20241204
  4. CODEINE PHOSPHATE [Concomitant]
     Active Substance: CODEINE PHOSPHATE
     Indication: Product used for unknown indication
     Dosage: 2 GRAM, BID, IMMEDIATELY AFTER BREAKFAST AND DINNER
     Route: 048
  5. POTASSIUM ASPARTATE [Concomitant]
     Active Substance: POTASSIUM ASPARTATE
     Indication: Product used for unknown indication
     Dosage: 1 TABLET, QD, IMMEDIATELY AFTER BREAKFAST
     Route: 048
     Dates: start: 20241204
  6. CALCIUM POLYCARBOPHIL [Concomitant]
     Active Substance: CALCIUM POLYCARBOPHIL
     Indication: Product used for unknown indication
     Dosage: 2 TABLETS, BID,IMMEDIATELY AFTER BREAKFAST AND DINNER
     Route: 048
  7. Zolpidem tartrate towa [Concomitant]
     Indication: Insomnia
     Route: 048
  8. SILODOSIN [Concomitant]
     Active Substance: SILODOSIN
     Indication: Product used for unknown indication
     Dosage: 1 TABLET, BID,IMMEDIATELY AFTER BREAKFAST AND DINNER
     Route: 048
     Dates: start: 20241204
  9. FOLIC ACID [Concomitant]
     Active Substance: FOLIC ACID
     Indication: Product used for unknown indication
     Dosage: 1 TABLET, QD,IMMEDIATELY AFTER BREAKFAST
     Route: 048

REACTIONS (1)
  - Disease progression [Fatal]

NARRATIVE: CASE EVENT DATE: 20241218
